FAERS Safety Report 18445959 (Version 3)
Quarter: 2020Q4

REPORT INFORMATION
  Report Type: Spontaneous
  Country: US (occurrence: US)
  Receive Date: 20201030
  Receipt Date: 20201218
  Transmission Date: 20210114
  Serious: No
  Sender: FDA-Public Use
  Company Number: US-ASTRAZENECA-2020SF40990

PATIENT
  Age: 69 Year
  Sex: Female
  Weight: 68 kg

DRUGS (18)
  1. SYMBICORT [Suspect]
     Active Substance: BUDESONIDE\FORMOTEROL FUMARATE DIHYDRATE
     Dosage: RECEIVED THE GENERIC BUDESONIDE AND FORMOTEROL FUMARATE DIHYDRATE 160/4.5MCG INHALER 2 PUFFS TWIC...
     Route: 055
     Dates: start: 20200928, end: 20201020
  2. PROAIR HFA [Concomitant]
     Active Substance: ALBUTEROL SULFATE
     Indication: CHRONIC OBSTRUCTIVE PULMONARY DISEASE
     Dosage: 90.0MG AS REQUIRED
     Route: 055
  3. SPIRIVA [Concomitant]
     Active Substance: TIOTROPIUM BROMIDE MONOHYDRATE
     Indication: ASTHMA
     Route: 055
  4. BUDESONIDE. [Concomitant]
     Active Substance: BUDESONIDE
     Dosage: 2.5MG/3ML, UNKNOWN
  5. GENERIC FLONASE [Suspect]
     Active Substance: FLUTICASONE PROPIONATE
     Indication: ASTHMA
     Dosage: RESTARTED THE GENERIC FLONASE NASAL SPRAY
     Route: 045
     Dates: start: 202009
  6. GENERIC FLONASE [Suspect]
     Active Substance: FLUTICASONE PROPIONATE
     Indication: ASTHMA
     Route: 045
     Dates: end: 2019
  7. GENERIC FLONASE [Suspect]
     Active Substance: FLUTICASONE PROPIONATE
     Indication: CHRONIC OBSTRUCTIVE PULMONARY DISEASE
     Dosage: RESTARTED THE GENERIC FLONASE NASAL SPRAY
     Route: 045
     Dates: start: 202009
  8. PROAIR HFA [Concomitant]
     Active Substance: ALBUTEROL SULFATE
     Indication: ASTHMA
     Dosage: 90.0MG AS REQUIRED
     Route: 055
  9. MULTIVITAMIN [Concomitant]
     Active Substance: VITAMINS
     Indication: SUPPLEMENTATION THERAPY
     Dosage: DAILY
     Route: 048
  10. SYMBICORT [Suspect]
     Active Substance: BUDESONIDE\FORMOTEROL FUMARATE DIHYDRATE
     Dosage: 160/4.5MCG, 2 PUFFS TWICE DAILY
     Route: 055
     Dates: start: 2004, end: 20200928
  11. GENERIC FLONASE [Suspect]
     Active Substance: FLUTICASONE PROPIONATE
     Indication: CHRONIC OBSTRUCTIVE PULMONARY DISEASE
     Route: 045
     Dates: end: 2019
  12. SPIRIVA [Concomitant]
     Active Substance: TIOTROPIUM BROMIDE MONOHYDRATE
     Indication: CHRONIC OBSTRUCTIVE PULMONARY DISEASE
     Route: 055
  13. ZYRTEC [Concomitant]
     Active Substance: CETIRIZINE HYDROCHLORIDE
     Indication: HYPERSENSITIVITY
     Route: 048
  14. VITAMIN D3 [Concomitant]
     Active Substance: CHOLECALCIFEROL
     Indication: SUPPLEMENTATION THERAPY
     Dosage: 2000 IU, DAILY
     Route: 048
  15. SYMBICORT [Suspect]
     Active Substance: BUDESONIDE\FORMOTEROL FUMARATE DIHYDRATE
     Dosage: TAKING SYMBICORT 1 PUFF TWICE DAILY, WHICH IS LESS THAN PRESCRIBED
     Route: 055
     Dates: start: 202008
  16. SYMBICORT [Suspect]
     Active Substance: BUDESONIDE\FORMOTEROL FUMARATE DIHYDRATE
     Dosage: STARTED TAKING SYMBICORT 160/4.5MCG AGAIN AFTER SHE STOPPED TAKING BUDESONIDE AND FORMOTEROL
     Route: 055
     Dates: start: 20201021
  17. ALBUTEROL NEBULIZER [Concomitant]
     Active Substance: ALBUTEROL
     Indication: ASTHMA
     Dosage: 2.5MG AS REQUIRED
     Route: 055
  18. ALBUTEROL NEBULIZER [Concomitant]
     Active Substance: ALBUTEROL
     Indication: CHRONIC OBSTRUCTIVE PULMONARY DISEASE
     Dosage: 2.5MG AS REQUIRED
     Route: 055

REACTIONS (5)
  - Product packaging quantity issue [Unknown]
  - Wrong technique in product usage process [Unknown]
  - Intentional device misuse [Recovered/Resolved]
  - Asthma [Not Recovered/Not Resolved]
  - Epistaxis [Recovered/Resolved]

NARRATIVE: CASE EVENT DATE: 2019
